FAERS Safety Report 6275982-6 (Version None)
Quarter: 2009Q3

REPORT INFORMATION
  Report Type: 
  Country: None (occurrence: None)
  Receive Date: 20090720
  Receipt Date: 20090710
  Transmission Date: 20100115
  Serious: Yes (Hospitalization, Other)
  Sender: FDA-Public Use
  Company Number: 2009008556

PATIENT

DRUGS (1)
  1. TRISENOX [Suspect]
     Indication: MYELODYSPLASTIC SYNDROME
     Dosage: INTRAVENOUS
     Route: 042

REACTIONS (4)
  - CATHETER RELATED INFECTION [None]
  - HAEMORRHAGE [None]
  - MYELODYSPLASTIC SYNDROME [None]
  - PNEUMONIA [None]
